FAERS Safety Report 13776176 (Version 1)
Quarter: 2017Q3

REPORT INFORMATION
  Report Type: Spontaneous
  Country: US (occurrence: US)
  Receive Date: 20170721
  Receipt Date: 20170721
  Transmission Date: 20171127
  Serious: Yes (Hospitalization)
  Sender: FDA-Public Use
  Company Number: US-SA-2017SA131414

PATIENT
  Age: 86 Year
  Sex: Female

DRUGS (10)
  1. AMLODIPINE BESILATE [Concomitant]
     Active Substance: AMLODIPINE BESYLATE
  2. BRIMONIDINE TARTRATE. [Concomitant]
     Active Substance: BRIMONIDINE TARTRATE
  3. COLACE [Concomitant]
     Active Substance: DOCUSATE SODIUM
  4. CARVEDILOL. [Concomitant]
     Active Substance: CARVEDILOL
  5. CALCIUM [Concomitant]
     Active Substance: CALCIUM
  6. ALIROCUMAB PREFILLED PEN [Concomitant]
     Active Substance: ALIROCUMAB
     Dosage: FREQUENCY: 2X A MONTH
     Dates: start: 20160602
  7. ALPHAGAN P [Concomitant]
     Active Substance: BRIMONIDINE TARTRATE
  8. PRALUENT [Suspect]
     Active Substance: ALIROCUMAB
     Dosage: FREQUENCY: 2X A MONTH
     Route: 058
     Dates: start: 20160602
  9. ANASTROZOLE. [Concomitant]
     Active Substance: ANASTROZOLE
  10. ACETAMINOPHEN. [Concomitant]
     Active Substance: ACETAMINOPHEN

REACTIONS (1)
  - Fall [Unknown]

NARRATIVE: CASE EVENT DATE: 201706
